FAERS Safety Report 9668643 (Version 1)
Quarter: 2013Q4

REPORT INFORMATION
  Report Type: Spontaneous
  Country: US (occurrence: US)
  Receive Date: 20131105
  Receipt Date: 20131105
  Transmission Date: 20140711
  Serious: Yes (Death, Hospitalization)
  Sender: FDA-Public Use
  Company Number: US-AMGEN-USASP2013077118

PATIENT
  Sex: Female

DRUGS (1)
  1. ENBREL [Suspect]
     Indication: RHEUMATOID ARTHRITIS
     Dosage: UNK
     Route: 065

REACTIONS (8)
  - Death [Fatal]
  - Back pain [Unknown]
  - Dyspnoea [Unknown]
  - Renal failure [Unknown]
  - Haemorrhage [Unknown]
  - Disorientation [Unknown]
  - Sepsis [Unknown]
  - Lung infection [Unknown]
